FAERS Safety Report 8781877 (Version 2)
Quarter: 2012Q4

REPORT INFORMATION
  Report Type: 
  Country: US (occurrence: US)
  Receive Date: 20120913
  Receipt Date: 20120923
  Transmission Date: 20130627
  Serious: No
  Sender: FDA-Public Use
  Company Number: US-BIOGENIDEC-2012BI036277

PATIENT
  Age: 49 Year
  Sex: Female

DRUGS (1)
  1. TYSABRI [Suspect]
     Indication: MULTIPLE SCLEROSIS
     Route: 042
     Dates: start: 20120508, end: 20120913

REACTIONS (18)
  - Feeling hot [Unknown]
  - Confusional state [Unknown]
  - Slow speech [Unknown]
  - Adverse reaction [Recovered/Resolved]
  - Thinking abnormal [Recovered/Resolved]
  - Balance disorder [Recovered/Resolved]
  - Infusion site pain [Recovered/Resolved]
  - Flushing [Recovered/Resolved]
  - Dizziness [Unknown]
  - Dyspnoea [Recovered/Resolved]
  - Blood pressure abnormal [Unknown]
  - Feeling abnormal [Unknown]
  - Memory impairment [Unknown]
  - Dry mouth [Recovered/Resolved]
  - Cough [Recovered/Resolved]
  - Nausea [Unknown]
  - Headache [Recovered/Resolved]
  - Hypersensitivity [Recovered/Resolved]
